FAERS Safety Report 5073574-8 (Version None)
Quarter: 2006Q3

REPORT INFORMATION
  Report Type: 
  Country: None (occurrence: None)
  Receive Date: 20060803
  Receipt Date: 20060724
  Transmission Date: 20061208
  Serious: Yes (Hospitalization)
  Sender: FDA-Public Use
  Company Number: APP200600213

PATIENT
  Age: 68 Year
  Sex: Female
  Weight: 70.29 kg

DRUGS (3)
  1. VANCOMYCIN HYDROCHLORIDE [Suspect]
     Indication: OSTEOMYELITIS
     Dosage: SEE IMAGE
     Route: 042
     Dates: start: 20060209, end: 20060301
  2. VANCOMYCIN HYDROCHLORIDE [Suspect]
     Indication: OSTEOMYELITIS
     Dosage: SEE IMAGE
     Route: 042
     Dates: start: 20060302
  3. DIPHENHYDRAMINE HCL [Concomitant]

REACTIONS (9)
  - ALOPECIA [None]
  - FACIAL PALSY [None]
  - HYPERSENSITIVITY [None]
  - NAIL DISORDER [None]
  - PARAESTHESIA [None]
  - PRURITUS [None]
  - RENAL DISORDER [None]
  - SWELLING [None]
  - URTICARIA [None]
